FAERS Safety Report 18386505 (Version 1)
Quarter: 2020Q4

REPORT INFORMATION
  Report Type: Spontaneous
  Country: GB (occurrence: GB)
  Receive Date: 20201015
  Receipt Date: 20201015
  Transmission Date: 20210114
  Serious: Yes (Hospitalization)
  Sender: FDA-Public Use
  Company Number: GB-TEVA-2020-GB-1838089

PATIENT
  Age: 60 Year
  Sex: Female
  Weight: 40 kg

DRUGS (5)
  1. ATORVASTATIN [Concomitant]
     Active Substance: ATORVASTATIN
     Dosage: 20MG
  2. TRIMETHOPRIM. [Suspect]
     Active Substance: TRIMETHOPRIM
     Indication: URINARY TRACT INFECTION
     Dosage: UNKNOWN
     Route: 048
     Dates: start: 20200717, end: 20200718
  3. RANITIDINE. [Concomitant]
     Active Substance: RANITIDINE
     Dosage: 300MG
  4. FOSTAIR [Concomitant]
     Active Substance: BECLOMETHASONE\FORMOTEROL
     Dosage: 100MCG/6MCG, 4 DOSAGE FORMS
  5. SALBUTAMOL [Concomitant]
     Active Substance: ALBUTEROL
     Indication: ASTHMA
     Route: 055

REACTIONS (6)
  - Hyponatraemia [Recovered/Resolved]
  - Cerebral salt-wasting syndrome [Recovered/Resolved]
  - Liver function test abnormal [Recovering/Resolving]
  - Epiglottitis [Recovered/Resolved]
  - Oral disorder [Unknown]
  - Stevens-Johnson syndrome [Recovered/Resolved with Sequelae]

NARRATIVE: CASE EVENT DATE: 20200718
